FAERS Safety Report 5345413-9 (Version None)
Quarter: 2007Q2

REPORT INFORMATION
  Report Type: 
  Country: None (occurrence: None)
  Receive Date: 20070426
  Receipt Date: 20060509
  Transmission Date: 20071010
  Serious: Yes (Other)
  Sender: FDA-Public Use
  Company Number: US-JNJFOC-20060404615

PATIENT
  Age: 27 Year
  Sex: Female

DRUGS (2)
  1. ULTRAM [Suspect]
     Indication: MIGRAINE
     Dates: start: 20050101
  2. HISTINEX PV (PROMIST HD) [Concomitant]

REACTIONS (3)
  - DRUG ABUSER [None]
  - DRUG EXPOSURE DURING PREGNANCY [None]
  - DRUG WITHDRAWAL SYNDROME [None]
